FAERS Safety Report 5927898-X (Version None)
Quarter: 2008Q4

REPORT INFORMATION
  Report Type: 
  Country: None (occurrence: None)
  Receive Date: 20081022
  Receipt Date: 20081022
  Transmission Date: 20090506
  Serious: Yes (Hospitalization)
  Sender: FDA-Public Use
  Company Number: None

PATIENT
  Sex: Male

DRUGS (2)
  1. PAROXETINE HCL [Suspect]
     Dosage: 20MG #60 1 TAB Q 24 HR PO
     Route: 048
  2. NEUPOGEN [Suspect]
     Dosage: 300MCG 3 TIMES WEEKLY SQ
     Route: 058

REACTIONS (4)
  - CHILLS [None]
  - DIARRHOEA [None]
  - HYPERHIDROSIS [None]
  - NAUSEA [None]
